FAERS Safety Report 25727936 (Version 1)
Quarter: 2025Q3

REPORT INFORMATION
  Report Type: Spontaneous
  Country: US (occurrence: None)
  Receive Date: 20250826
  Receipt Date: 20250826
  Transmission Date: 20251021
  Serious: Yes (Life-Threatening)
  Sender: FDA-CTU
  Company Number: None

PATIENT

DRUGS (1)
  1. CEFTRIAXONE [Suspect]
     Active Substance: CEFTRIAXONE

REACTIONS (6)
  - Urinary tract infection [None]
  - Fall [None]
  - Musculoskeletal discomfort [None]
  - Unresponsive to stimuli [None]
  - Pulse absent [None]
  - Presyncope [None]

NARRATIVE: CASE EVENT DATE: 20240412
